FAERS Safety Report 7255874-6 (Version None)
Quarter: 2011Q1

REPORT INFORMATION
  Report Type: 
  Country: None (occurrence: None)
  Receive Date: 20110129
  Receipt Date: 20100507
  Transmission Date: 20110831
  Serious: No
  Sender: FDA-Public Use
  Company Number: US-ABBOTT-10P-163-0637995-00

PATIENT
  Sex: Female
  Weight: 54.48 kg

DRUGS (15)
  1. RESTORIL [Concomitant]
     Indication: SLEEP DISORDER THERAPY
  2. CYCLOBENZAPRINE [Concomitant]
     Indication: BACK PAIN
  3. HUMIRA [Suspect]
     Indication: ARTHRITIS
     Dosage: PEN
     Dates: start: 20100409
  4. ZINC [Concomitant]
     Indication: MINERAL SUPPLEMENTATION
  5. ACIPHEX [Concomitant]
     Indication: GASTROOESOPHAGEAL REFLUX DISEASE
  6. COMPAZINE [Concomitant]
     Indication: NAUSEA
  7. MULTIPLE VITAMINS [Concomitant]
     Indication: VITAMIN SUPPLEMENTATION
  8. HUMIRA [Suspect]
     Indication: CROHN'S DISEASE
     Dates: start: 20060301, end: 20100409
  9. TRAMADOL HCL [Concomitant]
     Indication: BACK PAIN
  10. VITAMIN D [Concomitant]
     Indication: HYPOVITAMINOSIS
  11. ASACOL [Concomitant]
     Indication: CROHN'S DISEASE
  12. VALIUM [Concomitant]
     Indication: ANXIETY
  13. VICODIN [Concomitant]
     Indication: PAIN
  14. FISH OIL [Concomitant]
     Indication: VITAMIN SUPPLEMENTATION
  15. ZYRTEC [Concomitant]
     Indication: HYPERSENSITIVITY

REACTIONS (3)
  - DEVICE MALFUNCTION [None]
  - INJECTION SITE PAIN [None]
  - INJECTION SITE HAEMATOMA [None]
